FAERS Safety Report 5850639-1 (Version None)
Quarter: 2008Q4

REPORT INFORMATION
  Report Type: 
  Country: None (occurrence: None)
  Receive Date: 20080818
  Receipt Date: 20080805
  Transmission Date: 20090506
  Serious: Yes (Other)
  Sender: FDA-Public Use
  Company Number: AZAIL200800259

PATIENT
  Age: 84 Year
  Sex: Male

DRUGS (2)
  1. VIDAZA [Suspect]
     Indication: MYELODYSPLASTIC SYNDROME
     Dosage: 75 MG/M2 (75 MG/M2, 1 IN 1,  SUBCUTANEOUS; 100 MG/KG
     Route: 058
     Dates: start: 20080604, end: 20080608
  2. VIDAZA [Suspect]
     Indication: MYELODYSPLASTIC SYNDROME
     Dosage: 75 MG/M2 (75 MG/M2, 1 IN 1,  SUBCUTANEOUS; 100 MG/KG
     Route: 058
     Dates: start: 20080706, end: 20080710

REACTIONS (1)
  - WHITE BLOOD CELL COUNT INCREASED [None]
